FAERS Safety Report 7510353-3 (Version None)
Quarter: 2011Q2

REPORT INFORMATION
  Report Type: 
  Country: None (occurrence: None)
  Receive Date: 20110527
  Receipt Date: 20110513
  Transmission Date: 20111010
  Serious: Yes (Other)
  Sender: FDA-Public Use
  Company Number: MA-WATSON-2011-06079

PATIENT
  Age: 32 Year
  Sex: Male

DRUGS (4)
  1. TRIHEXYPHENIDYL HYDROCHLORIDE [Suspect]
     Indication: EXTRAPYRAMIDAL DISORDER
     Dosage: UNK
  2. HALOPERIDOL [Suspect]
     Indication: PSYCHOTIC DISORDER
     Dosage: UNK
  3. PHENOBARBITAL TAB [Suspect]
     Indication: CONVULSION
  4. LEVOMEPROMAZINE [Suspect]
     Indication: PSYCHOTIC DISORDER

REACTIONS (2)
  - CONVULSION [None]
  - EXTRAPYRAMIDAL DISORDER [None]
